FAERS Safety Report 13388831 (Version 1)
Quarter: 2017Q1

REPORT INFORMATION
  Report Type: Spontaneous
  Country: CN (occurrence: CN)
  Receive Date: 20170331
  Receipt Date: 20170331
  Transmission Date: 20170429
  Serious: Yes (Death, Other)
  Sender: FDA-Public Use
  Company Number: CN-ROCHE-1913402

PATIENT
  Age: 41 Year
  Sex: Female

DRUGS (10)
  1. CILASTATIN [Concomitant]
     Active Substance: CILASTATIN
     Indication: INFECTION
     Route: 065
     Dates: start: 2008
  2. ITRACONAZOLE. [Concomitant]
     Active Substance: ITRACONAZOLE
  3. MYCOPHENOLATE MOFETIL. [Suspect]
     Active Substance: MYCOPHENOLATE MOFETIL
     Indication: PROPHYLAXIS AGAINST GRAFT VERSUS HOST DISEASE
     Route: 065
     Dates: start: 2008
  4. CICLOSPORIN [Suspect]
     Active Substance: CYCLOSPORINE
     Indication: PROPHYLAXIS AGAINST GRAFT VERSUS HOST DISEASE
     Route: 048
     Dates: start: 2008
  5. METHOTREXATE. [Suspect]
     Active Substance: METHOTREXATE
     Indication: PROPHYLAXIS AGAINST GRAFT VERSUS HOST DISEASE
     Route: 065
     Dates: start: 2008
  6. NORVANCOMYCIN [Concomitant]
     Active Substance: VANCOMYCIN
     Indication: INFECTION
     Route: 065
     Dates: start: 2008
  7. METHYLPREDNISOLONE. [Suspect]
     Active Substance: METHYLPREDNISOLONE
     Indication: GRAFT VERSUS HOST DISEASE
     Dosage: GRADUALLY TAPERED DOSE
     Route: 065
     Dates: start: 2008
  8. CICLOSPORIN [Suspect]
     Active Substance: CYCLOSPORINE
     Route: 042
     Dates: start: 2008, end: 2008
  9. IMIPENEM [Concomitant]
     Active Substance: IMIPENEM
     Indication: INFECTION
     Route: 065
     Dates: start: 2008
  10. METHYLPREDNISOLONE. [Suspect]
     Active Substance: METHYLPREDNISOLONE
     Route: 065
     Dates: start: 2008, end: 2008

REACTIONS (2)
  - Respiratory failure [Fatal]
  - Rhabdomyolysis [Not Recovered/Not Resolved]

NARRATIVE: CASE EVENT DATE: 20080527
